FAERS Safety Report 22118105 (Version 2)
Quarter: 2023Q2

REPORT INFORMATION
  Report Type: Spontaneous
  Country: JP (occurrence: JP)
  Receive Date: 20230321
  Receipt Date: 20230501
  Transmission Date: 20230722
  Serious: Yes (Other)
  Sender: FDA-Public Use
  Company Number: JP-NOVOPROD-1022822

PATIENT
  Age: 11 Year
  Sex: Male
  Weight: 48.7 kg

DRUGS (7)
  1. NORDITROPIN [Suspect]
     Active Substance: SOMATROPIN
     Dosage: 0.175MG/KG /WEEK,
     Route: 058
     Dates: start: 20191031
  2. NORDITROPIN [Suspect]
     Active Substance: SOMATROPIN
     Dosage: 0.021MG/KG /WEEK
     Route: 058
     Dates: start: 20230202
  3. NORDITROPIN [Suspect]
     Active Substance: SOMATROPIN
     Indication: Hypopituitarism
     Dosage: 0.175MG/KG
     Route: 058
     Dates: start: 20190208, end: 20190508
  4. CORTRIL [Concomitant]
     Active Substance: HYDROCORTISONE
     Indication: Hypopituitarism
     Dosage: 130 MG, BID
     Route: 048
     Dates: start: 20180508
  5. LEVOTHYROXINE [Concomitant]
     Active Substance: LEVOTHYROXINE
     Dosage: 100 ?G, QD
     Route: 048
  6. LEVOTHYROXINE [Concomitant]
     Active Substance: LEVOTHYROXINE
     Indication: Hypopituitarism
     Dosage: 500 ?G, QD
     Route: 048
     Dates: start: 20180508
  7. DESMOPRESSIN ACETATE [Concomitant]
     Active Substance: DESMOPRESSIN ACETATE
     Indication: Hypopituitarism
     Dosage: 60 ?G, QD
     Route: 048
     Dates: start: 20181102

REACTIONS (2)
  - Brain neoplasm [Not Recovered/Not Resolved]
  - Craniopharyngioma [Recovered/Resolved]

NARRATIVE: CASE EVENT DATE: 20190508
